FAERS Safety Report 6832375-8 (Version None)
Quarter: 2010Q3

REPORT INFORMATION
  Report Type: 
  Country: None (occurrence: None)
  Receive Date: 20100712
  Receipt Date: 20100630
  Transmission Date: 20110219
  Serious: Yes (Hospitalization)
  Sender: FDA-Public Use
  Company Number: DE-ELI_LILLY_AND_COMPANY-DE201006007775

PATIENT
  Sex: Female

DRUGS (5)
  1. FORTEO [Suspect]
     Indication: OSTEOPOROSIS
     Dosage: UNK, DAILY (1/D)
     Route: 058
     Dates: start: 20090323
  2. CALCIUM +VIT D [Concomitant]
  3. CORTISONE [Concomitant]
  4. MARCUMAR [Concomitant]
  5. DIURETICS [Concomitant]

REACTIONS (3)
  - DUODENAL ULCER [None]
  - OEDEMA PERIPHERAL [None]
  - THROMBOSIS [None]
